FAERS Safety Report 9263107 (Version 1)
Quarter: 2013Q2

REPORT INFORMATION
  Report Type: Spontaneous
  Country: US (occurrence: None)
  Receive Date: 20130426
  Receipt Date: 20130426
  Transmission Date: 20140414
  Serious: No
  Sender: FDA-Public Use
  Company Number: None

PATIENT
  Age: 24 Year
  Sex: Female
  Weight: 55.34 kg

DRUGS (2)
  1. CLARAVIS [Suspect]
     Indication: ACNE CYSTIC
     Route: 048
     Dates: start: 20130311, end: 20130401
  2. CLARAVIS [Suspect]
     Route: 048

REACTIONS (2)
  - Benign intracranial hypertension [None]
  - Headache [None]
